FAERS Safety Report 9722187 (Version 2)
Quarter: 2013Q4

REPORT INFORMATION
  Report Type: Other
  Country: US (occurrence: US)
  Receive Date: 20131202
  Receipt Date: 20131224
  Transmission Date: 20140711
  Serious: Yes (Other)
  Sender: FDA-Public Use
  Company Number: US-LUPIN PHARMACEUTICALS INC.-E2B_00001470

PATIENT
  Age: 86 Year
  Sex: Female
  Weight: 66.28 kg

DRUGS (7)
  1. VALSARTAN AND HYDROCHLOROTHIAZIDE TABLETS USP 320MG/25MG [Suspect]
     Indication: HYPERTENSION
  2. VALSARTAN AND HYDROCHLOROTHIAZIDE TABLETS USP 320MG/25MG [Suspect]
     Dates: end: 20131111
  3. VALSARTAN AND HYDROCHLOROTHIAZIDE TABLETS USP 320MG/25MG [Suspect]
     Dates: start: 201311
  4. ATENOLOL [Concomitant]
     Indication: HYPERTENSION
  5. LIPITOR [Concomitant]
     Indication: HYPERCHOLESTEROLAEMIA
  6. NIACIN [Concomitant]
     Indication: HYPERCHOLESTEROLAEMIA
  7. ATIVAN [Concomitant]
     Indication: ANXIETY

REACTIONS (6)
  - Choking [Recovered/Resolved]
  - Nausea [Recovered/Resolved]
  - Withdrawal hypertension [Not Recovered/Not Resolved]
  - Dyspnoea [Recovered/Resolved]
  - Wrong technique in drug usage process [Recovered/Resolved]
  - Drug dose omission [Recovered/Resolved]
